FAERS Safety Report 6782475-6 (Version None)
Quarter: 2010Q2

REPORT INFORMATION
  Report Type: 
  Country: None (occurrence: None)
  Receive Date: 20100616
  Receipt Date: 20100609
  Transmission Date: 20101027
  Serious: Yes (Hospitalization, Other)
  Sender: FDA-Public Use
  Company Number: 007758

PATIENT
  Sex: Male
  Weight: 55.6 kg

DRUGS (2)
  1. CERTOLIZUMAB PEGOL [Suspect]
     Indication: CROHN'S DISEASE
     Dosage: 400 MG 1X/2 WEEKS, C87085 SUBCUTANEOUS, 400 MG 1X MONTH SUBCUTANEOUS
     Route: 058
     Dates: start: 20090602, end: 20090701
  2. CERTOLIZUMAB PEGOL [Suspect]
     Indication: CROHN'S DISEASE
     Dosage: 400 MG 1X/2 WEEKS, C87085 SUBCUTANEOUS, 400 MG 1X MONTH SUBCUTANEOUS
     Route: 058
     Dates: start: 20090701

REACTIONS (2)
  - FACIAL BONES FRACTURE [None]
  - VICTIM OF CRIME [None]
